FAERS Safety Report 6154264-7 (Version None)
Quarter: 2009Q2

REPORT INFORMATION
  Report Type: 
  Country: None (occurrence: None)
  Receive Date: 20090409
  Receipt Date: 20090330
  Transmission Date: 20091009
  Serious: Yes (Disabling)
  Sender: FDA-Public Use
  Company Number: MPS1-1000198

PATIENT
  Age: 5 Year
  Sex: Male

DRUGS (3)
  1. ALDURAZYME [Suspect]
     Indication: MUCOPOLYSACCHARIDOSIS I
     Dosage: 8.7 MG
     Dates: start: 20050823
  2. CARVEDILOL [Concomitant]
  3. AMLODIPINE [Concomitant]

REACTIONS (3)
  - BLINDNESS [None]
  - DISEASE PROGRESSION [None]
  - HYDROCEPHALUS [None]
